FAERS Safety Report 7160145-2 (Version None)
Quarter: 2010Q4

REPORT INFORMATION
  Report Type: 
  Country: None (occurrence: None)
  Receive Date: 20101214
  Receipt Date: 20091130
  Transmission Date: 20110411
  Serious: No
  Sender: FDA-Public Use
  Company Number: US-AMGEN-TCS377460

PATIENT

DRUGS (2)
  1. ENBREL [Suspect]
     Indication: ANKYLOSING SPONDYLITIS
     Dosage: 50 MG, QWK
     Route: 058
     Dates: start: 20080601
  2. ADALIMUMAB [Concomitant]
     Dosage: UNK UNK, UNK
     Dates: start: 20090301, end: 20090601

REACTIONS (3)
  - ALOPECIA [None]
  - ARTHRALGIA [None]
  - WEIGHT INCREASED [None]
